FAERS Safety Report 10237755 (Version 1)
Quarter: 2014Q2

REPORT INFORMATION
  Report Type: Spontaneous
  Country: FR (occurrence: FR)
  Receive Date: 20140616
  Receipt Date: 20140616
  Transmission Date: 20141212
  Serious: Yes (Hospitalization)
  Sender: FDA-Public Use
  Company Number: FR-MERCK-1406FRA005054

PATIENT
  Age: 56 Year
  Sex: Male

DRUGS (6)
  1. CANCIDAS [Suspect]
     Dosage: UNK
     Route: 042
     Dates: start: 20140324
  2. CEFTAZIDIME [Suspect]
     Dosage: UNK
     Route: 042
     Dates: start: 20140321, end: 20140326
  3. INEXIUM (ESOMEPRAZOLE MAGNESIUM) (ESOMEPRAZOLE MAGNESIUM) [Suspect]
     Dosage: UNK
     Route: 048
     Dates: start: 20140307, end: 20140324
  4. FLAGYL [Suspect]
     Dosage: UNK
     Route: 048
     Dates: start: 20140322
  5. VANCOMYCIN [Suspect]
     Dosage: UNK
     Route: 042
     Dates: start: 20140307, end: 20140324
  6. ZOVIRAX [Suspect]
     Dosage: UNK
     Route: 042
     Dates: start: 20140320, end: 20140324

REACTIONS (1)
  - Renal tubular disorder [Unknown]
